FAERS Safety Report 7232855-X (Version None)
Quarter: 2011Q1

REPORT INFORMATION
  Report Type: 
  Country: None (occurrence: None)
  Receive Date: 20110119
  Receipt Date: 20110105
  Transmission Date: 20110831
  Serious: No
  Sender: FDA-Public Use
  Company Number: US-B.I. PHARMACEUTICALS,INC./RIDGEFIELD-2011-BP-00590BP

PATIENT
  Age: 26 Year
  Sex: Male

DRUGS (2)
  1. ZANTAC 150 [Suspect]
     Dosage: 600 MG
     Route: 048
     Dates: start: 20100701
  2. ZANTAC 150 [Suspect]
     Indication: DYSPEPSIA
     Dosage: 300 MG
     Route: 048
     Dates: start: 20100101, end: 20100701

REACTIONS (1)
  - DRUG INEFFECTIVE [None]
